FAERS Safety Report 15360975 (Version 1)
Quarter: 2018Q3

REPORT INFORMATION
  Report Type: Spontaneous
  Country: US (occurrence: US)
  Receive Date: 20180831
  Receipt Date: 20180831
  Transmission Date: 20181010
  Serious: No
  Sender: FDA-Public Use
  Company Number: None

PATIENT
  Age: 62 Year
  Sex: Female
  Weight: 50.8 kg

DRUGS (1)
  1. MAVYRET [Suspect]
     Active Substance: GLECAPREVIR\PIBRENTASVIR
     Indication: HEPATITIS C
     Dosage: ?          OTHER FREQUENCY:3  DAILY W/FOOD;?
     Route: 048
     Dates: start: 201807

REACTIONS (4)
  - Peripheral swelling [None]
  - Pruritus [None]
  - Headache [None]
  - Fatigue [None]
